FAERS Safety Report 21003030 (Version 1)
Quarter: 2022Q2

REPORT INFORMATION
  Report Type: Spontaneous
  Country: FR (occurrence: FR)
  Receive Date: 20220624
  Receipt Date: 20220624
  Transmission Date: 20220720
  Serious: Yes (Hospitalization)
  Sender: FDA-Public Use
  Company Number: None

PATIENT
  Age: 66 Year
  Sex: Female
  Weight: 53 kg

DRUGS (2)
  1. CARBOPLATIN [Suspect]
     Active Substance: CARBOPLATIN
     Indication: Clear cell carcinoma of cervix
     Dosage: STRENGTH: 10 MG/ML
     Route: 041
     Dates: start: 20211210, end: 20211210
  2. PACLITAXEL [Concomitant]
     Active Substance: PACLITAXEL
     Indication: Clear cell carcinoma of cervix
     Dosage: STRENGTH: 6 MG/ML
     Route: 041
     Dates: start: 20211210, end: 20211210

REACTIONS (1)
  - Infusion related reaction [Recovered/Resolved]

NARRATIVE: CASE EVENT DATE: 20211210
